FAERS Safety Report 16714204 (Version 16)
Quarter: 2021Q3

REPORT INFORMATION
  Report Type: Report from Study
  Country: CN (occurrence: CN)
  Receive Date: 20190819
  Receipt Date: 20210817
  Transmission Date: 20211014
  Serious: Yes (Death, Hospitalization)
  Sender: FDA-Public Use
  Company Number: CN-ROCHE-2372587

PATIENT
  Age: 33 Year
  Sex: Male
  Weight: 63 kg

DRUGS (44)
  1. MAGNESIUM ISOGLYCYRRHIZINATE [Concomitant]
     Active Substance: MAGNESIUM ISOGLYCYRRHIZINATE
     Indication: HEPATITIS
     Dates: start: 20191008, end: 20191011
  2. TROPISETRON [Concomitant]
     Active Substance: TROPISETRON
     Dosage: PREVENT NAUSEA AND VOMITING
     Dates: start: 20191008, end: 20191008
  3. MAGNESIUM ISOGLYCYRRHIZINATE [Concomitant]
     Active Substance: MAGNESIUM ISOGLYCYRRHIZINATE
     Indication: HEPATITIS VIRAL
     Dates: start: 20190805, end: 20190812
  4. POLYENE PHOSPHATIDYLCHOLINE [Concomitant]
     Active Substance: PHOSPHOLIPID
     Indication: HEPATITIS B
     Dates: start: 20191009, end: 20191011
  5. MAGNESIUM ISOGLYCYRRHIZINATE [Concomitant]
     Active Substance: MAGNESIUM ISOGLYCYRRHIZINATE
     Dates: start: 20191107, end: 20191109
  6. TENOFOVIR DISOPROXIL FUMARATE. [Concomitant]
     Active Substance: TENOFOVIR DISOPROXIL FUMARATE
     Indication: HEPATITIS
     Dates: start: 20191011
  7. MORPHINE HYDROCHLORIDE [Concomitant]
     Active Substance: MORPHINE HYDROCHLORIDE
     Indication: PAIN
     Dates: start: 20191108, end: 20191108
  8. URSODEOXYCHOLIC ACID [Concomitant]
     Active Substance: URSODIOL
     Indication: HEPATIC CIRRHOSIS
     Dates: start: 20190805
  9. CODEINE PHOSPHATE [Concomitant]
     Active Substance: CODEINE PHOSPHATE
     Dates: start: 20191115, end: 20191115
  10. POTASSIUM CHLORIDE. [Concomitant]
     Active Substance: POTASSIUM CHLORIDE
     Dates: start: 20191114, end: 20191117
  11. FUROSEMIDE. [Concomitant]
     Active Substance: FUROSEMIDE
     Indication: HEPATIC CIRRHOSIS
     Dates: start: 20191108, end: 20191108
  12. ATEZOLIZUMAB. [Suspect]
     Active Substance: ATEZOLIZUMAB
     Indication: HEPATOCELLULAR CARCINOMA
     Dosage: ON DAY 1 OF EACH 21 DAY CYCLE?DATE OF MOST RECENT DOSE OF ATEZOLIZUMAB (1200 MG) PRIOR TO EVENT ONSE
     Route: 042
     Dates: start: 20190308
  13. BEVACIZUMAB. [Suspect]
     Active Substance: BEVACIZUMAB
     Indication: HEPATOCELLULAR CARCINOMA
     Dosage: ON DAY 1 OF EACH 21 DAY CYCLE?DATE OF MOST RECENT DOSE OF BEVACIZUMAB (1080 MG) PRIOR TO EVENT ONSET
     Route: 042
     Dates: start: 20190308
  14. BICYCLOL [Concomitant]
     Active Substance: BICYCLOL
     Indication: HEPATITIS B
     Dosage: PIECE
     Dates: start: 201803
  15. SILYMARIN [Concomitant]
     Active Substance: DIETARY SUPPLEMENT\HERBALS\MILK THISTLE
     Indication: HEPATIC CIRRHOSIS
     Dates: start: 20190419
  16. REDUCED GLUTATHIONE SODIUM [Concomitant]
     Active Substance: GLUTATHIONE
     Dosage: PROTECT LIVER TREATMENT
     Dates: start: 20191107, end: 20191109
  17. SODIUM AESCINATE [Concomitant]
     Active Substance: SODIUM ESCINATE
     Indication: PERIPHERAL VENOUS DISEASE
     Dosage: VENOUS REFLUX DISORDER
     Dates: start: 20191008, end: 20191011
  18. OMEPRAZOLE MAGNESIUM. [Concomitant]
     Active Substance: OMEPRAZOLE MAGNESIUM
     Dosage: DISEASE OF THE STOMACH
     Dates: start: 20191011
  19. OMEPRAZOLE SODIUM [Concomitant]
     Active Substance: OMEPRAZOLE SODIUM
     Dates: start: 20191111, end: 20191117
  20. INSULIN [Concomitant]
     Active Substance: INSULIN NOS
     Dates: start: 20191107, end: 20191109
  21. OXYCODONE HYDROCHLORIDE. [Concomitant]
     Active Substance: OXYCODONE HYDROCHLORIDE
     Indication: PAIN
     Dates: start: 20191009, end: 20191011
  22. ASPIRIN. [Concomitant]
     Active Substance: ASPIRIN
     Dosage: REDUCES THE RISK OF A HEART ATTACK
     Dates: start: 20191009, end: 20191011
  23. REDUCED GLUTATHIONE SODIUM [Concomitant]
     Active Substance: GLUTATHIONE
     Dosage: PROTECT LIVER TREATMENT
     Dates: start: 20191008, end: 20191011
  24. PANTOPRAZOLE SODIUM. [Concomitant]
     Active Substance: PANTOPRAZOLE SODIUM
     Indication: GASTROINTESTINAL DISORDER
     Dates: start: 20191108, end: 20191108
  25. TROPISETRON [Concomitant]
     Active Substance: TROPISETRON
     Dosage: PREVENT NAUSEA AND VOMITING
     Dates: start: 20191108, end: 20191108
  26. AMBROXOL HYDROCHLORIDE [Concomitant]
     Active Substance: AMBROXOL HYDROCHLORIDE
     Dates: start: 20191111, end: 20191117
  27. DEXAMETHASONE SODIUM PHOSPHATE. [Concomitant]
     Active Substance: DEXAMETHASONE SODIUM PHOSPHATE
     Route: 042
     Dates: start: 20191111, end: 20191111
  28. FUROSEMIDE. [Concomitant]
     Active Substance: FUROSEMIDE
     Dates: start: 20191010, end: 20191010
  29. FUROSEMIDE. [Concomitant]
     Active Substance: FUROSEMIDE
     Dates: start: 20191008, end: 20191008
  30. POLYENE PHOSPHATIDYLCHOLINE [Concomitant]
     Active Substance: PHOSPHOLIPID
     Indication: HEPATIC CIRRHOSIS
     Dates: start: 20190805, end: 20190812
  31. PREDNISONE ACETATE [Concomitant]
     Active Substance: PREDNISONE ACETATE
     Route: 048
     Dates: start: 20190806, end: 20190809
  32. CALCIUM GLUCONATE. [Concomitant]
     Active Substance: CALCIUM GLUCONATE
     Dates: start: 20191111, end: 20191111
  33. CALCIUM GLUCONATE. [Concomitant]
     Active Substance: CALCIUM GLUCONATE
     Dates: start: 20191009, end: 20191009
  34. PREDNISONE ACETATE [Concomitant]
     Active Substance: PREDNISONE ACETATE
     Route: 048
     Dates: start: 20191008, end: 20191130
  35. INDOMETACIN [Concomitant]
     Active Substance: INDOMETHACIN
     Dates: start: 20191111, end: 20191111
  36. PRILOSEC [Concomitant]
     Active Substance: OMEPRAZOLE MAGNESIUM
     Dates: start: 20191111, end: 20191117
  37. ENTECAVIR. [Concomitant]
     Active Substance: ENTECAVIR
     Indication: HEPATITIS B
     Dates: start: 201803, end: 20191015
  38. ADEMETIONINE 1,4?BUTANEDISULFONATE [Concomitant]
     Active Substance: ADEMETIONINE BUTANEDISULFONATE
     Indication: HEPATIC CIRRHOSIS
     Dates: start: 20190805, end: 20190812
  39. INSULIN [Concomitant]
     Active Substance: INSULIN NOS
     Indication: DIABETES MELLITUS
     Dates: start: 20191008, end: 20191011
  40. MANNITOL. [Concomitant]
     Active Substance: MANNITOL
     Dates: start: 20191111, end: 20191117
  41. REDUCED GLUTATHIONE SODIUM [Concomitant]
     Active Substance: GLUTATHIONE
     Dates: start: 20191111, end: 20191117
  42. GINKGO [Concomitant]
     Active Substance: GINKGO
     Dates: start: 20191111, end: 20191111
  43. EDARAVONE [Concomitant]
     Active Substance: EDARAVONE
     Dates: start: 20191114, end: 20191115
  44. EDARAVONE [Concomitant]
     Active Substance: EDARAVONE
     Dates: start: 20191114, end: 20191114

REACTIONS (3)
  - Cerebral infarction [Recovered/Resolved]
  - Blood bilirubin increased [Recovered/Resolved]
  - Aspartate aminotransferase increased [Recovered/Resolved]

NARRATIVE: CASE EVENT DATE: 20190801
